FAERS Safety Report 23068171 (Version 1)
Quarter: 2023Q4

REPORT INFORMATION
  Report Type: Spontaneous
  Country: ML (occurrence: ML)
  Receive Date: 20231016
  Receipt Date: 20231016
  Transmission Date: 20240110
  Serious: Yes (Hospitalization, Other)
  Sender: FDA-Public Use
  Company Number: ML-ViiV Healthcare Limited-ML2023GSK141069

PATIENT

DRUGS (7)
  1. DOLUTEGRAVIR [Interacting]
     Active Substance: DOLUTEGRAVIR
     Indication: HIV infection
     Dosage: 50 MG
  2. DOLUTEGRAVIR [Interacting]
     Active Substance: DOLUTEGRAVIR
     Dosage: 50 MG, 1D
  3. RIFAMPIN [Interacting]
     Active Substance: RIFAMPIN
     Indication: Tuberculosis
     Dosage: UNK
  4. FLUCONAZOLE [Interacting]
     Active Substance: FLUCONAZOLE
     Indication: Cryptococcosis
     Dosage: 1200 MG, 1D
  5. FLUCONAZOLE [Interacting]
     Active Substance: FLUCONAZOLE
     Dosage: 800 MG, 1D
  6. LAMIVUDINE [Suspect]
     Active Substance: LAMIVUDINE
     Indication: HIV infection
     Dosage: 300 MG
  7. TENOFOVIR DISOPROXIL [Suspect]
     Active Substance: TENOFOVIR DISOPROXIL
     Indication: HIV infection
     Dosage: 300 MG

REACTIONS (10)
  - Meningitis cryptococcal [Unknown]
  - Headache [Unknown]
  - Cough [Unknown]
  - Pyrexia [Unknown]
  - Weight decreased [Recovering/Resolving]
  - Tuberculosis [Unknown]
  - Blood HIV RNA increased [Unknown]
  - Immune reconstitution inflammatory syndrome [Unknown]
  - Unmasking of previously unidentified disease [Unknown]
  - Drug interaction [Unknown]
